FAERS Safety Report 18385224 (Version 1)
Quarter: 2020Q4

REPORT INFORMATION
  Report Type: Spontaneous
  Country: US (occurrence: US)
  Receive Date: 20201015
  Receipt Date: 20201015
  Transmission Date: 20210114
  Serious: No
  Sender: FDA-Public Use
  Company Number: US-LEADINGPHARMA-US-2019LEASPO00033

PATIENT
  Age: 67 Year
  Sex: Male

DRUGS (1)
  1. GLYCOPYRROLATE TABLETS USP [Suspect]
     Active Substance: GLYCOPYRROLATE
     Indication: PRODUCT USE IN UNAPPROVED INDICATION
     Dosage: TABLET
     Route: 048

REACTIONS (1)
  - Drug ineffective for unapproved indication [Not Recovered/Not Resolved]
